FAERS Safety Report 12726542 (Version 1)
Quarter: 2016Q3

REPORT INFORMATION
  Report Type: Spontaneous
  Country: GB (occurrence: GB)
  Receive Date: 20160908
  Receipt Date: 20160908
  Transmission Date: 20161109
  Serious: Yes (Hospitalization, Other)
  Sender: FDA-Public Use
  Company Number: GB-GLAXOSMITHKLINE-GB2016GSK124177

PATIENT
  Sex: Female

DRUGS (6)
  1. SERETIDE [Suspect]
     Active Substance: FLUTICASONE PROPIONATE\SALMETEROL XINAFOATE
     Indication: CHRONIC OBSTRUCTIVE PULMONARY DISEASE
  2. CLARITHROMYCIN. [Interacting]
     Active Substance: CLARITHROMYCIN
     Dosage: UNK
  3. EPADERM [Suspect]
     Active Substance: MINERAL OIL\PETROLATUM\WAX, EMULSIFYING
     Indication: PSORIASIS
  4. DOXYCYCLINE. [Concomitant]
     Active Substance: DOXYCYCLINE
     Indication: PRODUCT USED FOR UNKNOWN INDICATION
     Dosage: UNK
     Dates: start: 2015, end: 2015
  5. AUGMENTIN [Suspect]
     Active Substance: AMOXICILLIN\CLAVULANATE POTASSIUM
     Indication: PRODUCT USED FOR UNKNOWN INDICATION
     Dosage: UNK
     Dates: end: 20151220
  6. DETTOL FIRST AID ANTISEPTIC [Suspect]
     Active Substance: CHLOROXYLENOL
     Indication: PRODUCT USED FOR UNKNOWN INDICATION

REACTIONS (19)
  - Movement disorder [Unknown]
  - Reaction to preservatives [Unknown]
  - Urticaria [Unknown]
  - Abdominal pain [Unknown]
  - Hypersensitivity [Unknown]
  - Asthenia [Not Recovered/Not Resolved]
  - Rib fracture [Unknown]
  - Dyspnoea [Unknown]
  - Asthma [Unknown]
  - Pain [Unknown]
  - White blood cell count decreased [Unknown]
  - Autoimmune disorder [Unknown]
  - Food allergy [Unknown]
  - Lower respiratory tract infection [Unknown]
  - Chest pain [Unknown]
  - Impaired quality of life [Unknown]
  - Diarrhoea [Unknown]
  - Drug interaction [Unknown]
  - Hypophagia [Unknown]

NARRATIVE: CASE EVENT DATE: 201512
